FAERS Safety Report 7889820-9 (Version None)
Quarter: 2011Q4

REPORT INFORMATION
  Report Type: 
  Country: None (occurrence: None)
  Receive Date: 20111103
  Receipt Date: 20110405
  Transmission Date: 20120403
  Serious: Yes (Hospitalization)
  Sender: FDA-Public Use
  Company Number: US-GLAXOSMITHKLINE-A0922266A

PATIENT
  Age: 75 Year
  Sex: Female

DRUGS (1)
  1. ROSIGLITAZONE MALEATE [Suspect]
     Indication: DIABETES MELLITUS
     Route: 048
     Dates: start: 20040105, end: 20070326

REACTIONS (3)
  - FALL [None]
  - TRANSIENT ISCHAEMIC ATTACK [None]
  - BLINDNESS UNILATERAL [None]
